FAERS Safety Report 8191304 (Version 4)
Quarter: 2013Q2

REPORT INFORMATION
  Report Type: Spontaneous
  Country: US (occurrence: US)
  Receive Date: 20111020
  Receipt Date: 20130524
  Transmission Date: 20140414
  Serious: Yes (Hospitalization, Congenital Anomaly, Other)
  Sender: FDA-Public Use
  Company Number: US-PFIZER INC-2011248650

PATIENT
  Sex: Female
  Weight: 3.57 kg

DRUGS (3)
  1. ZOLOFT [Suspect]
     Indication: DEPRESSION
     Dosage: UNK
     Route: 064
     Dates: end: 2007
  2. ZOLOFT [Suspect]
     Indication: GENERALISED ANXIETY DISORDER
     Dosage: 100 MG, UNK
     Route: 064
  3. PRENATAL VITAMINS [Concomitant]
     Dosage: UNK
     Route: 064

REACTIONS (18)
  - Shone complex [Unknown]
  - Patent ductus arteriosus [Unknown]
  - Congenital pulmonary hypertension [Unknown]
  - Tricuspid valve incompetence [Unknown]
  - Mitral valve incompetence [Unknown]
  - Atelectasis neonatal [Unknown]
  - Pulmonary oedema neonatal [Unknown]
  - Hypoplastic left heart syndrome [Unknown]
  - Aortic valve disease [Unknown]
  - Dysmorphism [Unknown]
  - Hepatomegaly [Unknown]
  - Hyperbilirubinaemia neonatal [Unknown]
  - Cardiomegaly [Unknown]
  - Right ventricular hypertrophy [Unknown]
  - Congenital anomaly [Unknown]
  - Maternal exposure timing unspecified [Unknown]
  - Neonatal respiratory distress syndrome [Unknown]
  - Sepsis neonatal [Unknown]
